FAERS Safety Report 17180529 (Version 3)
Quarter: 2021Q4

REPORT INFORMATION
  Report Type: Spontaneous
  Country: JP (occurrence: JP)
  Receive Date: 20191219
  Receipt Date: 20211229
  Transmission Date: 20220303
  Serious: Yes (Death, Other)
  Sender: FDA-Public Use
  Company Number: JP-BAYER-2019-228245

PATIENT
  Age: 84 Year
  Sex: Male
  Weight: 71.4 kg

DRUGS (18)
  1. XOFIGO [Suspect]
     Active Substance: RADIUM RA-223 DICHLORIDE
     Indication: Metastases to bone
     Dosage: UNK
     Dates: start: 20170927, end: 20170927
  2. XOFIGO [Suspect]
     Active Substance: RADIUM RA-223 DICHLORIDE
     Indication: Hormone-refractory prostate cancer
     Dosage: UNK
     Dates: start: 20171108, end: 20171108
  3. XOFIGO [Suspect]
     Active Substance: RADIUM RA-223 DICHLORIDE
     Indication: Metastases to bone
     Dosage: UNK
     Dates: start: 20171206, end: 20171206
  4. ZYTIGA [Suspect]
     Active Substance: ABIRATERONE ACETATE
     Indication: Hormone-refractory prostate cancer
     Dosage: DAILY DOSE 750 MG
     Route: 048
     Dates: end: 20171012
  5. DEXAMETHASONE [Suspect]
     Active Substance: DEXAMETHASONE
     Indication: Hormone-refractory prostate cancer
     Dosage: DAILY DOSE .5 MG
     Route: 048
  6. ABIRATERONE ACETATE [Interacting]
     Active Substance: ABIRATERONE ACETATE
     Dosage: UNK
     Dates: start: 20170309, end: 20171011
  7. SILODOSIN [Concomitant]
     Active Substance: SILODOSIN
     Indication: Benign prostatic hyperplasia
     Dosage: DAILY DOSE 8 MG
     Route: 048
     Dates: end: 20171012
  8. MAGNESIUM OXIDE [Concomitant]
     Active Substance: MAGNESIUM OXIDE
     Indication: Constipation
     Dosage: DAILY DOSE 1000 MG
     Route: 048
     Dates: end: 20171026
  9. LOXOPROFEN [Concomitant]
     Active Substance: LOXOPROFEN
     Indication: Pain
     Dosage: DAILY DOSE 60 MG
     Route: 048
  10. VONOPRAZAN FUMARATE [Concomitant]
     Active Substance: VONOPRAZAN FUMARATE
     Indication: Prophylaxis against gastrointestinal ulcer
     Dosage: DAILY DOSE 10 MG
     Route: 048
  11. ESTRAMUSTINE PHOSPHATE MEGLUMINE [Concomitant]
     Active Substance: ESTRAMUSTINE PHOSPHATE MEGLUMINE
     Indication: Hormone-refractory prostate cancer
     Dosage: DAILY DOSE 156.7 MG
     Route: 048
     Dates: start: 20171012, end: 20171025
  12. ESTRAMUSTINE PHOSPHATE MEGLUMINE [Concomitant]
     Active Substance: ESTRAMUSTINE PHOSPHATE MEGLUMINE
     Indication: Hormone-refractory prostate cancer
     Dosage: DAILY DOSE 626.8 MG
     Route: 048
     Dates: start: 20171026, end: 20171222
  13. ZOLEDRONIC [Concomitant]
     Active Substance: ZOLEDRONIC ACID
     Indication: Metastases to bone
     Dosage: DAILY DOSE 4 MG
     Dates: start: 20170920, end: 20171026
  14. TRAMADOL HYDROCHLORIDE [Concomitant]
     Active Substance: TRAMADOL HYDROCHLORIDE
     Dosage: DAILY DOSE 100 MG
     Dates: start: 20171026, end: 20171113
  15. TRAMADOL HYDROCHLORIDE [Concomitant]
     Active Substance: TRAMADOL HYDROCHLORIDE
     Dosage: DAILY DOSE 200 MG
     Dates: start: 20171114
  16. GOSERELIN ACETATE [Concomitant]
     Active Substance: GOSERELIN ACETATE
     Dosage: UNK
     Dates: start: 20111130, end: 20171026
  17. LOXOPROFEN SODIUM [Concomitant]
     Active Substance: LOXOPROFEN SODIUM
  18. ASPIRIN [Concomitant]
     Active Substance: ASPIRIN

REACTIONS (6)
  - Hormone-refractory prostate cancer [Fatal]
  - Ilium fracture [Not Recovered/Not Resolved]
  - Platelet count decreased [Not Recovered/Not Resolved]
  - Labelled drug-drug interaction medication error [None]
  - Pelvic pain [None]
  - Decreased appetite [None]

NARRATIVE: CASE EVENT DATE: 20171026
